FAERS Safety Report 21962796 (Version 3)
Quarter: 2023Q1

REPORT INFORMATION
  Report Type: Spontaneous
  Country: US (occurrence: US)
  Receive Date: 20230207
  Receipt Date: 20230322
  Transmission Date: 20230418
  Serious: No
  Sender: FDA-Public Use
  Company Number: US-PFIZER INC-202300024707

PATIENT
  Age: 67 Year
  Sex: Female
  Weight: 83.5 kg

DRUGS (8)
  1. PACLITAXEL [Suspect]
     Active Substance: PACLITAXEL
     Dosage: 300 MG
  2. PACLITAXEL [Suspect]
     Active Substance: PACLITAXEL
     Dosage: 250 MG
  3. PACLITAXEL [Suspect]
     Active Substance: PACLITAXEL
     Dosage: UNK
  4. PACLITAXEL [Suspect]
     Active Substance: PACLITAXEL
     Dosage: UNK
  5. PACLITAXEL [Suspect]
     Active Substance: PACLITAXEL
     Dosage: UNK
  6. CARBOPLATIN [Suspect]
     Active Substance: CARBOPLATIN
     Dosage: UNK
  7. DEXAMETHASONE [Concomitant]
     Active Substance: DEXAMETHASONE
     Indication: Premedication
     Dosage: UNK
  8. BENADRYL [Concomitant]
     Active Substance: DIPHENHYDRAMINE HYDROCHLORIDE
     Indication: Premedication
     Dosage: UNK

REACTIONS (3)
  - Flushing [Recovered/Resolved]
  - Dyspnoea [Recovered/Resolved]
  - Tachycardia [Recovered/Resolved]

NARRATIVE: CASE EVENT DATE: 20221004
